FAERS Safety Report 25171546 (Version 1)
Quarter: 2025Q2

REPORT INFORMATION
  Report Type: Spontaneous
  Country: US (occurrence: US)
  Receive Date: 20250408
  Receipt Date: 20250408
  Transmission Date: 20250716
  Serious: No
  Sender: ROCHE
  Company Number: US-ROCHE-10000246028

PATIENT
  Sex: Female

DRUGS (1)
  1. XOLAIR [Suspect]
     Active Substance: OMALIZUMAB
     Indication: Idiopathic urticaria
     Dosage: 150 MG/ ML?DOSE: 1 PEN
     Route: 058
     Dates: start: 202309

REACTIONS (3)
  - Off label use [Unknown]
  - Idiopathic urticaria [Unknown]
  - Rash [Unknown]
